APPROVED DRUG PRODUCT: BICALUTAMIDE
Active Ingredient: BICALUTAMIDE
Strength: 50MG
Dosage Form/Route: TABLET;ORAL
Application: A078285 | Product #001
Applicant: ROXANE LABORATORIES INC
Approved: Mar 24, 2011 | RLD: No | RS: No | Type: DISCN